FAERS Safety Report 6303517-8 (Version None)
Quarter: 2009Q3

REPORT INFORMATION
  Report Type: 
  Country: None (occurrence: None)
  Receive Date: 20090810
  Receipt Date: 20090803
  Transmission Date: 20100115
  Serious: Yes (Hospitalization, Other)
  Sender: FDA-Public Use
  Company Number: FR-SANOFI-SYNTHELABO-A02200900855

PATIENT
  Sex: Male

DRUGS (5)
  1. LANZOR [Concomitant]
     Indication: DRUG USE FOR UNKNOWN INDICATION
     Route: 048
     Dates: start: 19970101
  2. ISOPTIN [Concomitant]
     Indication: DRUG USE FOR UNKNOWN INDICATION
     Route: 048
     Dates: start: 19970101
  3. TAHOR [Suspect]
     Indication: HYPERCHOLESTEROLAEMIA
     Route: 048
     Dates: start: 19970101, end: 20090320
  4. PLAVIX [Suspect]
     Indication: CORONARY ARTERY INSUFFICIENCY
     Route: 048
     Dates: start: 20060101, end: 20090216
  5. PLAVIX [Suspect]
     Route: 048
     Dates: start: 20090226, end: 20090303

REACTIONS (5)
  - ARTHRALGIA [None]
  - ASTHENIA [None]
  - PLEURISY [None]
  - SYNOVIAL CYST [None]
  - SYSTEMIC INFLAMMATORY RESPONSE SYNDROME [None]
